FAERS Safety Report 9084239 (Version 2)
Quarter: 2013Q1

REPORT INFORMATION
  Report Type: Spontaneous
  Country: JP (occurrence: JP)
  Receive Date: 20130218
  Receipt Date: 20130311
  Transmission Date: 20140127
  Serious: Yes (Other)
  Sender: FDA-Public Use
  Company Number: PHHY2013JP015101

PATIENT
  Age: 94 Year
  Sex: Male

DRUGS (5)
  1. EXELON PATCH [Suspect]
     Indication: DEMENTIA ALZHEIMER^S TYPE
     Dosage: 13.5 MG, DAILY
     Route: 062
  2. COLDRIN [Concomitant]
     Dosage: 12.5 MG, UNK
     Route: 048
  3. MUCOSTA [Concomitant]
     Dosage: 100 MG, UNK
  4. MUCOSOLVAN [Concomitant]
     Dosage: UNK UKN, UNK
     Route: 048
  5. ASPARA K [Concomitant]
     Dosage: 300 MG, UNK

REACTIONS (1)
  - Pneumonia [Recovered/Resolved]
